FAERS Safety Report 18839818 (Version 2)
Quarter: 2022Q1

REPORT INFORMATION
  Report Type: Report from Study
  Country: GB (occurrence: GB)
  Receive Date: 20210203
  Receipt Date: 20220120
  Transmission Date: 20220423
  Serious: Yes (Other)
  Sender: FDA-Public Use
  Company Number: GB-TAKEDA-2021TUS005693

PATIENT

DRUGS (8)
  1. BORTEZOMIB [Suspect]
     Active Substance: BORTEZOMIB
     Indication: Plasma cell myeloma
     Dosage: 1.3 MILLIGRAM/SQ. METER
     Route: 058
  2. DEXAMETHASONE [Suspect]
     Active Substance: DEXAMETHASONE
     Indication: Plasma cell myeloma
     Dosage: 20 MILLIGRAM
     Route: 048
  3. DEXAMETHASONE [Suspect]
     Active Substance: DEXAMETHASONE
     Dosage: 10 MILLIGRAM
     Route: 048
  4. DEXAMETHASONE [Suspect]
     Active Substance: DEXAMETHASONE
     Dosage: 10 MILLIGRAM
     Route: 048
  5. VORINOSTAT [Suspect]
     Active Substance: VORINOSTAT
     Indication: Plasma cell myeloma
     Dosage: 400 MILLIGRAM
     Route: 048
  6. VORINOSTAT [Suspect]
     Active Substance: VORINOSTAT
     Dosage: 400 MILLIGRAM
     Route: 048
  7. CYCLOPHOSPHAMIDE [Concomitant]
     Active Substance: CYCLOPHOSPHAMIDE
     Dosage: UNK
     Route: 065
  8. THALIDOMIDE [Concomitant]
     Active Substance: THALIDOMIDE
     Dosage: UNK
     Route: 065

REACTIONS (16)
  - Disease progression [Unknown]
  - Thrombocytopenia [Unknown]
  - Sepsis [Unknown]
  - Neutropenia [Unknown]
  - Palpitations [Unknown]
  - Dehydration [Unknown]
  - Hypotension [Unknown]
  - Diarrhoea [Unknown]
  - Anaemia [Unknown]
  - Peripheral sensorimotor neuropathy [Unknown]
  - Fatigue [Unknown]
  - Pyrexia [Unknown]
  - Alanine aminotransferase increased [Unknown]
  - Nausea [Unknown]
  - Constipation [Unknown]
  - Vomiting [Unknown]
